FAERS Safety Report 10131711 (Version 2)
Quarter: 2014Q2

REPORT INFORMATION
  Report Type: Spontaneous
  Country: TN (occurrence: TN)
  Receive Date: 20140428
  Receipt Date: 20140630
  Transmission Date: 20141212
  Serious: Yes (Hospitalization)
  Sender: FDA-Public Use
  Company Number: TN-PFIZER INC-2014114636

PATIENT
  Sex: Male

DRUGS (1)
  1. SUTENT [Suspect]
     Indication: RENAL CANCER METASTATIC
     Dosage: 50 MG, CYCLIC (FOUR WEEKS ON, 2 WEEKS OFF)
     Route: 048
     Dates: start: 201404, end: 201404

REACTIONS (5)
  - Hepatocellular injury [Recovered/Resolved]
  - Aspartate aminotransferase increased [Recovered/Resolved]
  - Blood pressure increased [Recovered/Resolved]
  - Jaundice [Recovered/Resolved]
  - Fatigue [Recovered/Resolved]
